FAERS Safety Report 17551363 (Version 1)
Quarter: 2020Q1

REPORT INFORMATION
  Report Type: Spontaneous
  Country: US (occurrence: US)
  Receive Date: 20200317
  Receipt Date: 20200317
  Transmission Date: 20200409
  Serious: No
  Sender: FDA-Public Use
  Company Number: US-UPSHER-SMITH LABORATORIES, LLC-2019USL00755

PATIENT
  Age: 71 Year
  Sex: Female
  Weight: 83.9 kg

DRUGS (4)
  1. VITAMIN D [Concomitant]
     Active Substance: VITAMIN D NOS
  2. MULTIVITAMIN [Concomitant]
     Active Substance: VITAMINS
  3. COQ10 [Concomitant]
     Active Substance: UBIDECARENONE
  4. PREVALITE [Suspect]
     Active Substance: CHOLESTYRAMINE
     Indication: HYPERCHOLESTEROLAEMIA
     Dosage: 8 G, 1X/DAY AT BEDTIME
     Route: 048
     Dates: start: 2017, end: 20190917

REACTIONS (3)
  - Hypersensitivity [Recovering/Resolving]
  - Reaction to excipient [Recovering/Resolving]
  - Rash [Recovering/Resolving]

NARRATIVE: CASE EVENT DATE: 201909
